FAERS Safety Report 4367938-5 (Version None)
Quarter: 2004Q2

REPORT INFORMATION
  Report Type: 
  Country: None (occurrence: None)
  Receive Date: 20040601
  Receipt Date: 20040517
  Transmission Date: 20050107
  Serious: Yes (Other)
  Sender: FDA-Public Use
  Company Number: CHPA2004US02299

PATIENT
  Age: 3 Year
  Weight: 12.7 kg

DRUGS (1)
  1. EX-LAX MILK OF MAGNESIA CHOCOLATE (NCH)(MAGNESIUM HYDROXIDE, SIMETHICO [Suspect]
     Indication: CONSTIPATION
     Dosage: 2 TSP, TID
     Dates: start: 20031201

REACTIONS (5)
  - DENTAL PULP DISORDER [None]
  - FACE INJURY [None]
  - FALL [None]
  - TOOTH DISCOLOURATION [None]
  - TOOTH INJURY [None]
